FAERS Safety Report 6866132-3 (Version None)
Quarter: 2010Q3

REPORT INFORMATION
  Report Type: 
  Country: None (occurrence: None)
  Receive Date: 20100722
  Receipt Date: 20100713
  Transmission Date: 20110219
  Serious: No
  Sender: FDA-Public Use
  Company Number: US-JNJFOC-20100602648

PATIENT
  Sex: Male
  Weight: 90.27 kg

DRUGS (16)
  1. SANDOZ FENTANYL TRANSDERMAL SYSTEM [Suspect]
     Indication: PAIN
     Route: 062
  2. SANDOZ FENTANYL TRANSDERMAL SYSTEM [Suspect]
     Route: 062
  3. SANDOZ FENTANYL TRANSDERMAL SYSTEM [Suspect]
     Indication: OESOPHAGEAL CARCINOMA
     Route: 062
  4. SANDOZ FENTANYL TRANSDERMAL SYSTEM [Suspect]
     Route: 062
  5. ZOFRAN [Concomitant]
     Indication: NAUSEA
     Route: 048
  6. LEVEMIR [Concomitant]
     Indication: DIABETES MELLITUS
     Route: 058
  7. NOVOLOG [Concomitant]
     Indication: DIABETES MELLITUS
     Route: 058
  8. CORGARD [Concomitant]
     Indication: HYPERTENSION
     Route: 048
  9. LISINOPRIL [Concomitant]
     Indication: HYPERTENSION
     Route: 048
  10. FLEXERIL [Concomitant]
     Indication: MUSCLE RELAXANT THERAPY
     Route: 048
  11. ULTRAM [Concomitant]
     Indication: PAIN
     Dosage: 3 TABLETS OF 50MG ONCE DAILY
     Route: 048
  12. MORPHINE SULFATE [Concomitant]
     Indication: PAIN
     Route: 065
  13. CARAFATE [Concomitant]
     Indication: GASTROINTESTINAL DISORDER THERAPY
     Dosage: 1 GM/10 ML
     Route: 065
  14. EMEND [Concomitant]
     Indication: NAUSEA
     Route: 065
  15. ONDANSETRON [Concomitant]
     Indication: NAUSEA
     Route: 065
  16. DEXAMETHASONE [Concomitant]
     Indication: STEROID THERAPY
     Route: 065

REACTIONS (3)
  - INADEQUATE ANALGESIA [None]
  - PRODUCT ADHESION ISSUE [None]
  - WRONG TECHNIQUE IN DRUG USAGE PROCESS [None]
